FAERS Safety Report 5841345-8 (Version None)
Quarter: 2008Q3

REPORT INFORMATION
  Report Type: 
  Country: None (occurrence: None)
  Receive Date: 20080812
  Receipt Date: 20080731
  Transmission Date: 20090109
  Serious: Yes (Hospitalization)
  Sender: FDA-Public Use
  Company Number: FR-WYE-G01948808

PATIENT
  Sex: Male
  Weight: 68 kg

DRUGS (8)
  1. RAPAMUNE [Suspect]
     Indication: PROPHYLAXIS AGAINST TRANSPLANT REJECTION
     Dosage: UNKNOWN
     Route: 048
     Dates: start: 20070820, end: 20070902
  2. RAPAMUNE [Suspect]
     Dosage: UNKNOWN
     Route: 048
     Dates: start: 20070901
  3. TENORMIN [Concomitant]
     Route: 048
  4. FOLIC ACID [Concomitant]
     Route: 048
  5. EUPRESSYL [Concomitant]
     Route: 048
  6. CELLCEPT [Concomitant]
     Route: 048
  7. TAHOR [Concomitant]
     Route: 048
  8. AMLOR [Concomitant]
     Route: 048

REACTIONS (4)
  - BLOOD CREATININE INCREASED [None]
  - DIARRHOEA [None]
  - DRUG INTERACTION [None]
  - RASH MACULAR [None]
